FAERS Safety Report 7618245-6 (Version None)
Quarter: 2011Q3

REPORT INFORMATION
  Report Type: 
  Country: None (occurrence: None)
  Receive Date: 20110718
  Receipt Date: 20110707
  Transmission Date: 20111222
  Serious: Yes (Death, Hospitalization)
  Sender: FDA-Public Use
  Company Number: AU-GLAXOSMITHKLINE-B0725153A

PATIENT
  Sex: Female
  Weight: 46 kg

DRUGS (6)
  1. FENTANYL-100 [Concomitant]
     Indication: BACK PAIN
     Dates: start: 20100415
  2. DEXAMETHASONE [Suspect]
     Indication: MULTIPLE MYELOMA
     Dosage: 40MG WEEKLY
     Route: 065
     Dates: start: 20100419
  3. ENOXAPARIN [Concomitant]
     Indication: THROMBOSIS PROPHYLAXIS
     Dates: start: 20100415
  4. ZOLEDRONIC ACID [Concomitant]
     Indication: MULTIPLE MYELOMA
     Dates: start: 20100415
  5. MELPHALAN HYDROCHLORIDE [Suspect]
     Indication: MULTIPLE MYELOMA
     Dosage: 30MG THREE TIMES PER DAY
     Route: 065
     Dates: start: 20110127
  6. THALIDOMIDE [Suspect]
     Indication: MULTIPLE MYELOMA
     Dosage: 100MG AT NIGHT
     Route: 048
     Dates: start: 20100318

REACTIONS (2)
  - ANAEMIA [None]
  - PNEUMONIA [None]
